FAERS Safety Report 8130990-5 (Version None)
Quarter: 2012Q1

REPORT INFORMATION
  Report Type: 
  Country: None (occurrence: None)
  Receive Date: 20120208
  Receipt Date: 20120208
  Transmission Date: 20120608
  Serious: No
  Sender: FDA-Public Use
  Company Number: None

PATIENT
  Sex: Female

DRUGS (1)
  1. ZOFRAN [Suspect]
     Indication: HYPEREMESIS GRAVIDARUM

REACTIONS (3)
  - INFUSION SITE IRRITATION [None]
  - INFUSION SITE WARMTH [None]
  - INFUSION SITE ERYTHEMA [None]
